FAERS Safety Report 13922212 (Version 2)
Quarter: 2017Q4

REPORT INFORMATION
  Report Type: Spontaneous
  Country: IN (occurrence: IN)
  Receive Date: 20170830
  Receipt Date: 20171103
  Transmission Date: 20180320
  Serious: Yes (Death, Other)
  Sender: FDA-Public Use
  Company Number: IN-SA-2017SA157965

PATIENT
  Sex: Female

DRUGS (1)
  1. LANTUS [Suspect]
     Active Substance: INSULIN GLARGINE
     Dosage: DOSE:26 UNIT(S)
     Route: 051
     Dates: start: 2014

REACTIONS (4)
  - Hyperglycaemia [Not Recovered/Not Resolved]
  - Blood glucose increased [Not Recovered/Not Resolved]
  - Death [Fatal]
  - Impaired gastric emptying [Unknown]

NARRATIVE: CASE EVENT DATE: 201702
